FAERS Safety Report 6155927-X (Version None)
Quarter: 2009Q2

REPORT INFORMATION
  Report Type: 
  Country: None (occurrence: None)
  Receive Date: 20090415
  Receipt Date: 20090401
  Transmission Date: 20091009
  Serious: Yes (Other)
  Sender: FDA-Public Use
  Company Number: US-ROCHE-625854

PATIENT
  Age: 40 Year
  Sex: Male

DRUGS (15)
  1. SAQUINAVIR [Suspect]
     Indication: ANTIRETROVIRAL THERAPY
     Dosage: DRUG: SAQUINAVIR MESYLATE
     Route: 065
  2. EMTRICITABINE [Suspect]
     Indication: ANTIRETROVIRAL THERAPY
     Route: 065
  3. DIDANOSINE [Suspect]
     Indication: ANTIRETROVIRAL THERAPY
     Route: 065
  4. LAMIVUDINE [Suspect]
     Indication: ANTIRETROVIRAL THERAPY
     Route: 065
  5. ZIDOVUDINE [Suspect]
     Indication: ANTIRETROVIRAL THERAPY
     Route: 065
  6. STAVUDINE [Suspect]
     Indication: ANTIRETROVIRAL THERAPY
     Route: 065
  7. TENOFOVIR [Suspect]
     Indication: ANTIRETROVIRAL THERAPY
     Dosage: DRUG: TENOFOVIE FUMARATE
     Route: 065
  8. ATAZANAVIR SULFATE [Suspect]
     Indication: ANTIRETROVIRAL THERAPY
     Route: 065
  9. RITONAVIR [Suspect]
     Indication: ANTIRETROVIRAL THERAPY
     Route: 065
  10. LOPINAVIR [Suspect]
     Indication: ANTIRETROVIRAL THERAPY
     Route: 065
  11. DARUNAVIR [Suspect]
     Indication: ANTIRETROVIRAL THERAPY
     Route: 065
  12. AMPRENAVIR [Suspect]
     Indication: ANTIRETROVIRAL THERAPY
     Route: 065
  13. EFAVIRENZ [Suspect]
     Indication: ANTIRETROVIRAL THERAPY
     Route: 065
  14. DELAVIRDINE MESYLATE [Suspect]
     Indication: ANTIRETROVIRAL THERAPY
     Route: 065
  15. NEVIRAPINE [Suspect]
     Indication: ANTIRETROVIRAL THERAPY
     Route: 065

REACTIONS (3)
  - HEPATIC STEATOSIS [None]
  - HEPATOTOXICITY [None]
  - LIPODYSTROPHY ACQUIRED [None]
